FAERS Safety Report 20859020 (Version 1)
Quarter: 2022Q2

REPORT INFORMATION
  Report Type: Spontaneous
  Country: IT (occurrence: IT)
  Receive Date: 20220523
  Receipt Date: 20220523
  Transmission Date: 20220720
  Serious: Yes (Other)
  Sender: FDA-Public Use
  Company Number: IT-SA-SAC20220518001406

PATIENT
  Sex: Male

DRUGS (1)
  1. CABLIVI [Suspect]
     Active Substance: CAPLACIZUMAB-YHDP
     Indication: Thrombotic thrombocytopenic purpura
     Dosage: 4 DF (AMPOULES)

REACTIONS (2)
  - Intestinal haemorrhage [Unknown]
  - Melaena [Unknown]
